FAERS Safety Report 20102146 (Version 1)
Quarter: 2021Q4

REPORT INFORMATION
  Report Type: Spontaneous
  Country: US (occurrence: None)
  Receive Date: 20211122
  Receipt Date: 20211122
  Transmission Date: 20220303
  Serious: Yes (Life-Threatening)
  Sender: FDA-Public Use
  Company Number: None

PATIENT
  Age: 21 Year
  Sex: Female

DRUGS (4)
  1. ESCITALOPRAM [Suspect]
     Active Substance: ESCITALOPRAM OXALATE
     Indication: Major depression
     Dosage: FREQUENCY : DAILY;?
     Route: 048
     Dates: start: 20210625
  2. ESCITALOPRAM [Suspect]
     Active Substance: ESCITALOPRAM OXALATE
     Indication: Anxiety
  3. ESCITALOPRAM [Suspect]
     Active Substance: ESCITALOPRAM OXALATE
     Indication: Post-traumatic stress disorder
  4. ZOLPIDEM [Suspect]
     Active Substance: ZOLPIDEM TARTRATE

REACTIONS (4)
  - Diplopia [None]
  - Feeling abnormal [None]
  - Loss of consciousness [None]
  - Product commingling [None]

NARRATIVE: CASE EVENT DATE: 20211105
